FAERS Safety Report 9556749 (Version 1)
Quarter: 2013Q3

REPORT INFORMATION
  Report Type: Spontaneous
  Country: US (occurrence: US)
  Receive Date: 20130926
  Receipt Date: 20130926
  Transmission Date: 20140515
  Serious: No
  Sender: FDA-Public Use
  Company Number: US-BAYER-2013-116135

PATIENT
  Sex: Female
  Weight: 60.77 kg

DRUGS (2)
  1. BAYER GENUINE ASPIRIN ORIGINAL STRENGTH [Suspect]
     Indication: PYREXIA
     Dosage: UNK UNK, PRN
     Route: 048
  2. ALEVE CAPLET [Suspect]
     Route: 048

REACTIONS (3)
  - Off label use [None]
  - Intentional drug misuse [None]
  - Drug ineffective [None]
